FAERS Safety Report 8103682-6 (Version None)
Quarter: 2012Q1

REPORT INFORMATION
  Report Type: 
  Country: None (occurrence: None)
  Receive Date: 20120201
  Receipt Date: 20120127
  Transmission Date: 20120608
  Serious: Yes (Death)
  Sender: FDA-Public Use
  Company Number: US-SANOFI-AVENTIS-2012SA006622

PATIENT

DRUGS (4)
  1. THERAPEUTIC RADIOPHARMACEUTICALS [Suspect]
     Dosage: DOSE: 2GY/DAY
     Route: 065
  2. DOCETAXEL [Suspect]
     Dosage: RECEIVED OVER 1 HOUR ON DAY 1 OF EVERY CYCLE, 3 CYCLES WERE GIVEN
     Route: 042
  3. DOCETAXEL [Suspect]
     Dosage: ON WEEK 10 AND THEN WEEKLY AFTERWARDS
     Route: 065
  4. CISPLATIN [Concomitant]
     Dosage: ON DAY 1; 3 CYCLES

REACTIONS (1)
  - PERICARDITIS [None]
